FAERS Safety Report 15710678 (Version 1)
Quarter: 2018Q4

REPORT INFORMATION
  Report Type: Spontaneous
  Country: US (occurrence: US)
  Receive Date: 20181211
  Receipt Date: 20181211
  Transmission Date: 20190205
  Serious: Yes (Hospitalization, Other)
  Sender: FDA-Public Use
  Company Number: US-SAKK-2018SA327039AA

PATIENT
  Age: 89 Year
  Sex: Female

DRUGS (2)
  1. LANTUS SOLOSTAR [Suspect]
     Active Substance: INSULIN GLARGINE
     Dosage: 55 U, QD
     Dates: start: 2000
  2. LANTUS SOLOSTAR [Suspect]
     Active Substance: INSULIN GLARGINE
     Indication: TYPE 2 DIABETES MELLITUS
     Dosage: 40 U, UNK

REACTIONS (11)
  - Dizziness [Unknown]
  - Malaise [Unknown]
  - Arthritis [Unknown]
  - Osteoporosis [Unknown]
  - Cerebrovascular disorder [Unknown]
  - Gastritis [Unknown]
  - Blood glucose increased [Unknown]
  - Syncope [Unknown]
  - Cerebral thrombosis [Unknown]
  - Thyroid disorder [Unknown]
  - Glaucoma [Unknown]
